FAERS Safety Report 8850322 (Version 1)
Quarter: 2012Q4

REPORT INFORMATION
  Report Type: 
  Country: DE (occurrence: FR)
  Receive Date: 20121019
  Receipt Date: 20121019
  Transmission Date: 20130627
  Serious: Yes (Other)
  Sender: FDA-Public Use
  Company Number: FR-FRI-1000039564

PATIENT
  Age: 82 Year
  Sex: Male

DRUGS (4)
  1. MEMANTINE [Suspect]
     Dates: start: 201107, end: 201108
  2. MEMANTINE [Suspect]
     Dosage: 20 mg
     Dates: start: 201108, end: 201204
  3. ARICEPT [Concomitant]
  4. JOSIR [Concomitant]

REACTIONS (2)
  - Phlebitis [Recovering/Resolving]
  - Off label use [Recovered/Resolved]
